FAERS Safety Report 9359176 (Version 2)
Quarter: 2014Q1

REPORT INFORMATION
  Report Type: Spontaneous
  Country: BR (occurrence: None)
  Receive Date: 20130617
  Receipt Date: 20140304
  Transmission Date: 20141002
  Serious: Yes (Other)
  Sender: FDA-Public Use
  Company Number: 7216770

PATIENT
  Age: 26 Year
  Sex: Female

DRUGS (2)
  1. EUTHYROX [Suspect]
     Indication: THYROID THERAPY
     Dates: start: 2003, end: 20130501
  2. YASMIN (DROSPIRENONE W/ETHINYLESTRADIOL) (ETHINYLESTRADIOL, DROSPIRENONE) [Concomitant]

REACTIONS (2)
  - Urticaria [None]
  - Angioedema [None]
